FAERS Safety Report 9127076 (Version 2)
Quarter: 2013Q3

REPORT INFORMATION
  Report Type: Spontaneous
  Country: JP (occurrence: JP)
  Receive Date: 20130122
  Receipt Date: 20130902
  Transmission Date: 20140515
  Serious: Yes (Hospitalization)
  Sender: FDA-Public Use
  Company Number: JP-ROCHE-1181377

PATIENT
  Age: 64 Year
  Sex: Female
  Weight: 46.5 kg

DRUGS (10)
  1. RITUXIMAB [Suspect]
     Indication: WALDENSTROM^S MACROGLOBULINAEMIA
     Route: 042
     Dates: start: 20091120
  2. RITUXIMAB [Suspect]
     Route: 042
     Dates: start: 20091221
  3. RITUXIMAB [Suspect]
     Route: 042
     Dates: start: 20100118
  4. RITUXIMAB [Suspect]
     Dosage: WITH CHOP REGIMEN
     Route: 065
  5. THYRADIN-S [Concomitant]
     Dosage: START DATE: BEFORE JUL 2010
     Route: 048
  6. BERIZYM [Concomitant]
     Dosage: START DATE: BEFORE JUL 2010
     Route: 048
  7. ALFAROL [Concomitant]
     Dosage: START DATE: BEFORE JUL 2010
     Route: 048
  8. HUSTAZOL [Concomitant]
     Dosage: START DATE: BEFORE JUL 2010
     Route: 048
  9. ALENDRONATE SODIUM [Concomitant]
     Dosage: DRUG: FOSAMAC( ALENDRONATE SODIUM HYDRATE), START DATE: BEFORE JUL 2010
     Route: 048
  10. CALCIUM LACTATE [Concomitant]
     Dosage: DRUG: CALCIUM LACTATE HYDRATE; START DATE: BEFORE JUL 2010
     Route: 048

REACTIONS (6)
  - Mouth ulceration [Recovered/Resolved]
  - Humoral immune defect [Recovering/Resolving]
  - Neutropenia [Recovering/Resolving]
  - Oesophageal ulcer [Recovered/Resolved]
  - Gastric ulcer [Recovered/Resolved with Sequelae]
  - Pharyngeal ulceration [Recovered/Resolved]
